FAERS Safety Report 9319314 (Version 2)
Quarter: 2013Q2

REPORT INFORMATION
  Report Type: Spontaneous
  Country: DE (occurrence: DE)
  Receive Date: 20130530
  Receipt Date: 20130625
  Transmission Date: 20140414
  Serious: Yes (Other)
  Sender: FDA-Public Use
  Company Number: DE-ELI_LILLY_AND_COMPANY-DE201304006635

PATIENT
  Sex: Female

DRUGS (3)
  1. YENTREVE [Suspect]
     Indication: NEURALGIA
     Dosage: 20 MG, UNKNOWN
     Route: 048
     Dates: start: 20130415, end: 20130415
  2. LYRICA [Concomitant]
     Dosage: UNK, UNKNOWN
  3. KATADOLON [Concomitant]
     Dosage: UNK, UNKNOWN

REACTIONS (4)
  - Polyp [Unknown]
  - Off label use [Recovered/Resolved]
  - Diarrhoea [Not Recovered/Not Resolved]
  - Colitis ulcerative [Unknown]
